FAERS Safety Report 4274731-0 (Version None)
Quarter: 2004Q1

REPORT INFORMATION
  Report Type: 
  Country: None (occurrence: None)
  Receive Date: 20040120
  Receipt Date: 20040120
  Transmission Date: 20041129
  Serious: Yes (Hospitalization)
  Sender: FDA-Public Use
  Company Number: None

PATIENT
  Sex: Male
  Weight: 74.3899 kg

DRUGS (7)
  1. CYTOXAN [Suspect]
     Indication: PANCREATIC CARCINOMA
     Dosage: 50 MG QDAY ORAL
     Route: 048
     Dates: start: 20031217, end: 20040114
  2. CELECOXIB 200 MG [Suspect]
     Indication: PANCREATIC CARCINOMA
     Dosage: 400 MG BID ORAL
     Route: 048
     Dates: start: 20031231, end: 20040114
  3. LANTUS [Concomitant]
  4. OXYCONTIN [Concomitant]
  5. NEXIUM [Concomitant]
  6. ROXANOL [Concomitant]
  7. PANCREASE [Concomitant]

REACTIONS (6)
  - BACTERIAL INFECTION [None]
  - BLOOD CULTURE POSITIVE [None]
  - BODY TEMPERATURE INCREASED [None]
  - CHILLS [None]
  - TREMOR [None]
  - VOMITING [None]
